FAERS Safety Report 17948842 (Version 2)
Quarter: 2020Q3

REPORT INFORMATION
  Report Type: Spontaneous
  Country: US (occurrence: US)
  Receive Date: 20200625
  Receipt Date: 20200714
  Transmission Date: 20201103
  Serious: Yes (Death, Other)
  Sender: FDA-Public Use
  Company Number: US-GILEAD-2020-0475659

PATIENT
  Age: 52 Year
  Sex: Male
  Weight: 73.6 kg

DRUGS (18)
  1. PROPOFOL. [Concomitant]
     Active Substance: PROPOFOL
  2. HUMALOG [Concomitant]
     Active Substance: INSULIN LISPRO
  3. VANCOMYCIN [Concomitant]
     Active Substance: VANCOMYCIN
  4. ZINC. [Concomitant]
     Active Substance: ZINC
  5. VERSED [Concomitant]
     Active Substance: MIDAZOLAM HYDROCHLORIDE
  6. MICAFUNGIN. [Concomitant]
     Active Substance: MICAFUNGIN SODIUM
  7. SODIUM BICARBONATE. [Concomitant]
     Active Substance: SODIUM BICARBONATE
  8. HYDROCORTISONE. [Concomitant]
     Active Substance: HYDROCORTISONE
  9. FENTANYL. [Concomitant]
     Active Substance: FENTANYL
  10. NOREPINEPHRINE. [Concomitant]
     Active Substance: NOREPINEPHRINE
  11. MEROPENEM. [Concomitant]
     Active Substance: MEROPENEM
  12. REMDESIVIR. [Suspect]
     Active Substance: REMDESIVIR
     Indication: COVID-19
     Dosage: 200 MG, ONCE
     Route: 042
     Dates: start: 20200525, end: 20200525
  13. CEFEPIME [Concomitant]
     Active Substance: CEFEPIME HYDROCHLORIDE
  14. REMDESIVIR. [Suspect]
     Active Substance: REMDESIVIR
     Dosage: 100 MG, QD
     Route: 042
     Dates: start: 20200526, end: 20200526
  15. PROTONIX [OMEPRAZOLE] [Concomitant]
     Active Substance: OMEPRAZOLE
  16. ROCURONIUM [Concomitant]
     Active Substance: ROCURONIUM BROMIDE
  17. HEPARIN [Concomitant]
     Active Substance: HEPARIN SODIUM
  18. INSULIN [Concomitant]
     Active Substance: INSULIN NOS

REACTIONS (2)
  - Liver function test increased [Recovered/Resolved]
  - Death [Fatal]

NARRATIVE: CASE EVENT DATE: 20200526
